FAERS Safety Report 7410191-6 (Version None)
Quarter: 2011Q2

REPORT INFORMATION
  Report Type: 
  Country: None (occurrence: None)
  Receive Date: 20110412
  Receipt Date: 20110407
  Transmission Date: 20111010
  Serious: Yes (Other)
  Sender: FDA-Public Use
  Company Number: JP-GENZYME-FLUD-1001036

PATIENT
  Age: 59 Year

DRUGS (8)
  1. FLUDARA [Suspect]
     Indication: APLASTIC ANAEMIA
     Dosage: 25 MG/M2, QD
     Route: 065
  2. FLUDARA [Suspect]
     Indication: CORD BLOOD TRANSPLANT THERAPY
  3. THYMOGLOBULIN [Suspect]
     Indication: IMMUNOSUPPRESSANT DRUG THERAPY
     Route: 065
  4. CYCLOSPORINE [Suspect]
     Indication: IMMUNOSUPPRESSANT DRUG THERAPY
     Route: 065
  5. MYCOPHENOLATE MOFETIL [Concomitant]
     Indication: PROPHYLAXIS AGAINST GRAFT VERSUS HOST DISEASE
     Route: 065
  6. MELPHALAN [Suspect]
     Indication: APLASTIC ANAEMIA
     Dosage: 40 MG/M2, QD
     Route: 065
  7. MELPHALAN [Suspect]
     Indication: CORD BLOOD TRANSPLANT THERAPY
  8. TACROLIMUS [Concomitant]
     Indication: PROPHYLAXIS AGAINST GRAFT VERSUS HOST DISEASE
     Route: 065

REACTIONS (4)
  - GASTROENTERITIS NOROVIRUS [None]
  - ACUTE GRAFT VERSUS HOST DISEASE [None]
  - EPSTEIN-BARR VIRUS ASSOCIATED LYMPHOPROLIFERATIVE DISORDER [None]
  - CHRONIC GRAFT VERSUS HOST DISEASE [None]
